FAERS Safety Report 8101758-0 (Version None)
Quarter: 2012Q1

REPORT INFORMATION
  Report Type: 
  Country: None (occurrence: None)
  Receive Date: 20120131
  Receipt Date: 20120119
  Transmission Date: 20120608
  Serious: Yes (Hospitalization)
  Sender: FDA-Public Use
  Company Number: PHHY2012RU005004

PATIENT
  Sex: Female

DRUGS (1)
  1. GLEEVEC [Suspect]
     Indication: CHRONIC MYELOID LEUKAEMIA
     Dosage: 400 MG, A DAY
     Route: 065
     Dates: start: 20111206, end: 20120111

REACTIONS (6)
  - HAEMATOTOXICITY [None]
  - FEBRILE NEUTROPENIA [None]
  - CHILLS [None]
  - FACIAL PAIN [None]
  - SINUSITIS [None]
  - BODY TEMPERATURE INCREASED [None]
